FAERS Safety Report 7041984-5 (Version None)
Quarter: 2010Q4

REPORT INFORMATION
  Report Type: 
  Country: None (occurrence: None)
  Receive Date: 20101013
  Receipt Date: 20100804
  Transmission Date: 20110411
  Serious: No
  Sender: FDA-Public Use
  Company Number: US-ASTRAZENECA-2010SE36479

PATIENT
  Age: 74 Year
  Sex: Female

DRUGS (3)
  1. SYMBICORT [Suspect]
     Indication: CHRONIC OBSTRUCTIVE PULMONARY DISEASE
     Dosage: 80/4.5 UG TWO PUFFS
     Route: 055
     Dates: start: 20080101
  2. SYMBICORT [Suspect]
     Dosage: 160/4.5 UG TWO PUFFS
     Route: 055
     Dates: start: 20100501
  3. ACCOLATE [Suspect]
     Indication: ASTHMA
     Dosage: DAILY
     Route: 048

REACTIONS (4)
  - ASTHMA [None]
  - CHRONIC OBSTRUCTIVE PULMONARY DISEASE [None]
  - DRUG DOSE OMISSION [None]
  - WHEEZING [None]
